FAERS Safety Report 4469429-X (Version None)
Quarter: 2004Q4

REPORT INFORMATION
  Report Type: 
  Country: None (occurrence: None)
  Receive Date: 20041005
  Receipt Date: 20040928
  Transmission Date: 20050328
  Serious: Yes (Hospitalization)
  Sender: FDA-Public Use
  Company Number: 1199712306

PATIENT
  Age: 85 Year
  Sex: Male
  Weight: 74.5 kg

DRUGS (3)
  1. CIPROXAN (CIPROFLOXACIN HYDROCHLORIDE) [Suspect]
     Indication: CYSTITIS
     Dosage: 200 MG, BID, ORAL
     Route: 048
     Dates: start: 19970806
  2. HARNAL [Concomitant]
  3. CERNILTON [Concomitant]

REACTIONS (12)
  - ALANINE AMINOTRANSFERASE INCREASED [None]
  - ASPARTATE AMINOTRANSFERASE INCREASED [None]
  - BLOOD ALKALINE PHOSPHATASE INCREASED [None]
  - BLOOD BILIRUBIN INCREASED [None]
  - BLOOD LACTATE DEHYDROGENASE INCREASED [None]
  - CYANOSIS [None]
  - DISSEMINATED INTRAVASCULAR COAGULATION [None]
  - GAMMA-GLUTAMYLTRANSFERASE INCREASED [None]
  - MULTI-ORGAN FAILURE [None]
  - RENAL FAILURE ACUTE [None]
  - RHABDOMYOLYSIS [None]
  - UROSEPSIS [None]
